FAERS Safety Report 14206644 (Version 5)
Quarter: 2018Q3

REPORT INFORMATION
  Report Type: Report from Study
  Country: JP (occurrence: JP)
  Receive Date: 20171120
  Receipt Date: 20180704
  Transmission Date: 20181010
  Serious: Yes (Hospitalization, Other)
  Sender: FDA-Public Use
  Company Number: JP-ALXN-A201711501AA

PATIENT
  Age: 5 Year
  Sex: Female

DRUGS (3)
  1. ADEROXAL [Concomitant]
     Active Substance: PYRIDOXAL PHOSPHATE
     Indication: PRODUCT USED FOR UNKNOWN INDICATION
     Dosage: 100 MG, BID
     Route: 048
  2. STRENSIQ [Suspect]
     Active Substance: ASFOTASE ALFA
     Dosage: 2 MG/KG, TIW
     Route: 058
     Dates: start: 20171127
  3. STRENSIQ [Suspect]
     Active Substance: ASFOTASE ALFA
     Indication: HYPOPHOSPHATASIA
     Dosage: 1.4 MG/KG, TIW
     Route: 058
     Dates: start: 20150928

REACTIONS (8)
  - Visual acuity reduced [Unknown]
  - Injection site reaction [Recovering/Resolving]
  - Epilepsy [Recovering/Resolving]
  - Symptom recurrence [Recovering/Resolving]
  - Respiratory syncytial virus infection [Recovered/Resolved]
  - Crystal urine present [Recovering/Resolving]
  - Drug ineffective [Unknown]
  - Urinary retention [Recovered/Resolved]

NARRATIVE: CASE EVENT DATE: 20170816
